FAERS Safety Report 7490534-8 (Version None)
Quarter: 2011Q2

REPORT INFORMATION
  Report Type: 
  Country: None (occurrence: None)
  Receive Date: 20110519
  Receipt Date: 20110513
  Transmission Date: 20111010
  Serious: Yes (Other)
  Sender: FDA-Public Use
  Company Number: JP-SANOFI-AVENTIS-200710786JP

PATIENT
  Age: 80 Year
  Sex: Female

DRUGS (9)
  1. WARFARIN SODIUM [Concomitant]
  2. ALLEGRA [Suspect]
     Route: 048
     Dates: start: 20070226, end: 20070322
  3. ALLOPURINOL [Concomitant]
  4. ZADITEN [Concomitant]
     Route: 047
  5. FAMOTIDINE [Concomitant]
  6. LASIX [Concomitant]
  7. ASPIRIN [Concomitant]
  8. DIGOXIN [Concomitant]
  9. ASCATE [Concomitant]

REACTIONS (1)
  - AGRANULOCYTOSIS [None]
